FAERS Safety Report 11745683 (Version 1)
Quarter: 2015Q4

REPORT INFORMATION
  Report Type: Spontaneous
  Country: US (occurrence: None)
  Receive Date: 20151116
  Receipt Date: 20151116
  Transmission Date: 20160304
  Serious: Yes (Hospitalization, Disabling)
  Sender: FDA-Public Use
  Company Number: None

PATIENT
  Age: 60 Year
  Sex: Female
  Weight: 100.7 kg

DRUGS (14)
  1. CELEBREX [Suspect]
     Active Substance: CELECOXIB
     Indication: OSTEOARTHRITIS
     Dosage: 10 YEARS?1 CAPSULE, ONCE DAILY, TAKEN BY MOUTH
     Route: 048
  2. PROVOCOL [Concomitant]
  3. PROBIOTICS [Concomitant]
     Active Substance: PROBIOTICS NOS
  4. MULTI VITAMIN [Concomitant]
     Active Substance: VITAMINS
  5. POTASSIUM [Concomitant]
     Active Substance: POTASSIUM
  6. MAGNESIUM [Concomitant]
     Active Substance: MAGNESIUM
  7. KRILL OIL [Concomitant]
     Active Substance: DIETARY SUPPLEMENT
  8. B VITAMIN [Concomitant]
  9. TRIAMPTERINE [Concomitant]
  10. DIGESTIVE ENZYME [Concomitant]
     Active Substance: UNSPECIFIED INGREDIENT
  11. ELIQUIS [Concomitant]
     Active Substance: APIXABAN
  12. CPAP [Concomitant]
     Active Substance: DEVICE
  13. DEXILANT [Concomitant]
     Active Substance: DEXLANSOPRAZOLE
  14. CURCUMIN [Concomitant]
     Active Substance: CURCUMIN

REACTIONS (3)
  - Gastritis [None]
  - Transient ischaemic attack [None]
  - Atrial fibrillation [None]
